FAERS Safety Report 4374470-1 (Version None)
Quarter: 2004Q2

REPORT INFORMATION
  Report Type: 
  Country: None (occurrence: None)
  Receive Date: 20040602
  Receipt Date: 20040311
  Transmission Date: 20050107
  Serious: No
  Sender: FDA-Public Use
  Company Number: 200415434BWH

PATIENT
  Age: 60 Year
  Sex: Male
  Weight: 108.8633 kg

DRUGS (13)
  1. LEVITRA [Suspect]
     Indication: ERECTILE DYSFUNCTION
     Dosage: 10 MG, TOTAL DAILY, ORAL
     Route: 048
     Dates: start: 20040201
  2. LEVITRA [Suspect]
     Indication: ERECTILE DYSFUNCTION
     Dosage: 10 MG, TOTAL DAILY, ORAL
     Route: 048
     Dates: start: 20040201
  3. LEVITRA [Suspect]
     Indication: ERECTILE DYSFUNCTION
     Dosage: 10 MG, TOTAL DAILY, ORAL
     Route: 048
     Dates: start: 20040310
  4. ACCUPRIL [Concomitant]
  5. ATENOLOL [Concomitant]
  6. WELCHOL [Concomitant]
  7. TERAZOSIN HCL [Concomitant]
  8. DETROL [Concomitant]
  9. ZYRTEC [Concomitant]
  10. RANITIDINE [Concomitant]
  11. ASPIRIN [Concomitant]
  12. FISH OIL [Concomitant]
  13. MULTI-VITAMIN [Concomitant]

REACTIONS (7)
  - BLOOD PRESSURE DECREASED [None]
  - CHEST PAIN [None]
  - DIZZINESS [None]
  - ERECTILE DYSFUNCTION [None]
  - HEADACHE [None]
  - HYPERHIDROSIS [None]
  - PARAESTHESIA [None]
